FAERS Safety Report 9985253 (Version 1)
Quarter: 2014Q1

REPORT INFORMATION
  Report Type: Report from Study
  Country: US (occurrence: US)
  Receive Date: 20140307
  Receipt Date: 20140307
  Transmission Date: 20141002
  Serious: No
  Sender: FDA-Public Use
  Company Number: US-ABBVIE-14P-163-1185624-00

PATIENT
  Age: 39 Year
  Sex: Female

DRUGS (6)
  1. HUMIRA [Suspect]
     Indication: CROHN^S DISEASE
     Dates: start: 20120702
  2. OMEPRAZOLE [Concomitant]
     Indication: GASTROOESOPHAGEAL REFLUX DISEASE
  3. ATIVAN [Concomitant]
     Indication: ANXIETY
     Dosage: UP TO TWO TABLETS DAILY
  4. VITAMIN B [Concomitant]
     Indication: MALABSORPTION
  5. IMURAN [Concomitant]
     Indication: CROHN^S DISEASE
     Route: 048
     Dates: start: 2012
  6. LORTAB [Concomitant]
     Indication: PAIN
     Dosage: 5/500 MG UP TO SIX TIMES DAILY
     Route: 048

REACTIONS (3)
  - Fatigue [Recovering/Resolving]
  - Abdominal pain [Recovering/Resolving]
  - Injection site induration [Recovering/Resolving]
